FAERS Safety Report 13473910 (Version 1)
Quarter: 2017Q2

REPORT INFORMATION
  Report Type: Spontaneous
  Country: GB (occurrence: GB)
  Receive Date: 20170424
  Receipt Date: 20170424
  Transmission Date: 20170830
  Serious: Yes (Hospitalization)
  Sender: FDA-Public Use
  Company Number: GB-MYLANLABS-2017M1024011

PATIENT

DRUGS (11)
  1. AMITRIPTYLINE [Suspect]
     Active Substance: AMITRIPTYLINE
     Dosage: INCREASING BY 10MG EVERY 5 DAYS (STARTING AT 10MG UNTIL 50MG REACHED)
     Route: 048
  2. OMEPRAZOLE. [Concomitant]
     Active Substance: OMEPRAZOLE
  3. BENDROFLUMETHIAZIDE [Concomitant]
     Active Substance: BENDROFLUMETHIAZIDE
  4. DILTIAZEM. [Suspect]
     Active Substance: DILTIAZEM
     Route: 048
  5. BUPRENORPHINE. [Concomitant]
     Active Substance: BUPRENORPHINE
  6. CITALOPRAM [Concomitant]
     Active Substance: CITALOPRAM HYDROBROMIDE
  7. ALLOPURINOL. [Concomitant]
     Active Substance: ALLOPURINOL
  8. COCODAMOL [Concomitant]
     Active Substance: ACETAMINOPHEN\CODEINE PHOSPHATE
  9. IRBESARTAN. [Concomitant]
     Active Substance: IRBESARTAN
  10. PROCHLORPERAZINE. [Concomitant]
     Active Substance: PROCHLORPERAZINE
  11. ETODOLAC. [Concomitant]
     Active Substance: ETODOLAC

REACTIONS (1)
  - Fall [Recovering/Resolving]
